FAERS Safety Report 4811396-0 (Version None)
Quarter: 2005Q4

REPORT INFORMATION
  Report Type: 
  Country: None (occurrence: None)
  Receive Date: 20051026
  Receipt Date: 20051026
  Transmission Date: 20060501
  Serious: No
  Sender: FDA-Public Use
  Company Number: None

PATIENT
  Age: 33 Year
  Sex: Female

DRUGS (2)
  1. PROZAC [Suspect]
     Indication: PANIC DISORDER
     Dosage: ONE - TWO QD
  2. PROZAC [Suspect]
     Indication: SCHIZOAFFECTIVE DISORDER
     Dosage: ONE - TWO QD

REACTIONS (4)
  - ANXIETY [None]
  - DEPRESSION [None]
  - MOOD ALTERED [None]
  - TEARFULNESS [None]
